FAERS Safety Report 6993653-5 (Version None)
Quarter: 2010Q3

REPORT INFORMATION
  Report Type: 
  Country: None (occurrence: None)
  Receive Date: 20100917
  Receipt Date: 20100721
  Transmission Date: 20110219
  Serious: Yes (Hospitalization)
  Sender: FDA-Public Use
  Company Number: US-ASTRAZENECA-2006UW22713

PATIENT
  Age: 612 Month
  Sex: Female
  Weight: 71.7 kg

DRUGS (34)
  1. SEROQUEL [Suspect]
     Indication: SCHIZOPHRENIA
     Dosage: 25 MG - 200 MG
     Route: 048
     Dates: start: 20001207
  2. SEROQUEL [Suspect]
     Indication: BIPOLAR DISORDER
     Dosage: 25 MG - 200 MG
     Route: 048
     Dates: start: 20001207
  3. SEROQUEL [Suspect]
     Indication: DEPRESSION
     Dosage: 25 MG - 200 MG
     Route: 048
     Dates: start: 20001207
  4. SEROQUEL [Suspect]
     Route: 048
     Dates: start: 20011031, end: 20040501
  5. SEROQUEL [Suspect]
     Route: 048
     Dates: start: 20011031, end: 20040501
  6. SEROQUEL [Suspect]
     Route: 048
     Dates: start: 20011031, end: 20040501
  7. ABILIFY [Concomitant]
     Dates: start: 20060901
  8. RISPERDAL [Concomitant]
  9. METHADONE [Concomitant]
  10. CLONIDINE HCL [Concomitant]
  11. HYDROCHLOROTHIAZIDE [Concomitant]
  12. IBUPROFEN [Concomitant]
  13. IMITREX [Concomitant]
  14. ZESTRIL [Concomitant]
  15. EFFEXOR XR [Concomitant]
  16. WELLBUTRIN SR [Concomitant]
  17. FERROUS SULFATE [Concomitant]
  18. NIFEDIPINE [Concomitant]
  19. DEPAKOTE [Concomitant]
  20. CELEXA [Concomitant]
  21. LORAZEPAM [Concomitant]
  22. TRAZODONE HCL [Concomitant]
  23. HYDROCODONE [Concomitant]
  24. METOPROLOL [Concomitant]
  25. NORVASC [Concomitant]
  26. DOCUSATE SODIUM [Concomitant]
  27. CIMETIDINE [Concomitant]
  28. TRIHEXYPHENIDYL HCL [Concomitant]
  29. FUROSEMIDE [Concomitant]
  30. METOCLOPRAMIDE [Concomitant]
  31. LIPITOR [Concomitant]
  32. METFORMIN HCL [Concomitant]
  33. HYDRALAZINE HCL [Concomitant]
     Dates: start: 20100101
  34. ALDACTONE [Concomitant]
     Dates: start: 20100101

REACTIONS (2)
  - DIABETES MELLITUS INADEQUATE CONTROL [None]
  - TYPE 2 DIABETES MELLITUS [None]
